FAERS Safety Report 8102750-2 (Version None)
Quarter: 2012Q1

REPORT INFORMATION
  Report Type: 
  Country: None (occurrence: None)
  Receive Date: 20120201
  Receipt Date: 20120118
  Transmission Date: 20120608
  Serious: Yes (Other)
  Sender: FDA-Public Use
  Company Number: BR-RANBAXY-2011R5-48408

PATIENT

DRUGS (1)
  1. ACYCLOVIR [Suspect]
     Indication: GENITAL HERPES
     Dosage: 200 MG, QID
     Route: 048
     Dates: start: 20110907, end: 20110909

REACTIONS (1)
  - UTERINE HAEMORRHAGE [None]
